FAERS Safety Report 4367328-5 (Version None)
Quarter: 2004Q2

REPORT INFORMATION
  Report Type: 
  Country: None (occurrence: None)
  Receive Date: 20040528
  Receipt Date: 20040528
  Transmission Date: 20050107
  Serious: Yes (Death)
  Sender: FDA-Public Use
  Company Number: None

PATIENT
  Sex: Male

DRUGS (1)
  1. OXALIPLATIN [Suspect]
     Indication: HEPATIC CANCER METASTATIC
     Dosage: 90 MG/M2 VIA HEPATIC ARTERIAL INFUSION
     Dates: start: 20040519

REACTIONS (6)
  - CATHETER RELATED COMPLICATION [None]
  - EMBOLISM [None]
  - GASTROINTESTINAL NECROSIS [None]
  - INTESTINAL ISCHAEMIA [None]
  - RASH MACULAR [None]
  - RENAL FAILURE ACUTE [None]
